FAERS Safety Report 17801773 (Version 3)
Quarter: 2020Q2

REPORT INFORMATION
  Report Type: Spontaneous
  Country: US (occurrence: US)
  Receive Date: 20200519
  Receipt Date: 20200629
  Transmission Date: 20200714
  Serious: No
  Sender: FDA-Public Use
  Company Number: US-SA-2020SA128250

PATIENT

DRUGS (9)
  1. KEVZARA [Suspect]
     Active Substance: SARILUMAB
     Indication: COVID-19
     Dosage: UNK
     Dates: start: 202004
  2. PRENATAL VITAMINS [MINERALS NOS;VITAMINS NOS] [Concomitant]
     Active Substance: MINERALS\VITAMINS
     Dosage: 1 DF, QD
     Route: 048
     Dates: start: 20170701, end: 20200419
  3. VITAMIN D [VITAMIN D NOS] [Concomitant]
     Active Substance: VITAMIN D NOS
     Indication: VITAMIN SUPPLEMENTATION
     Dosage: 1 DF, QD
     Route: 048
     Dates: start: 20190919, end: 20200419
  4. CAFFEINE. [Concomitant]
     Active Substance: CAFFEINE
     Dosage: 1 DF/1 SERVING 2.5 WEEK
     Route: 048
     Dates: start: 20190919, end: 20200419
  5. TYLENOL [Concomitant]
     Active Substance: ACETAMINOPHEN
     Indication: HEADACHE
     Dosage: 1 DF, 6.5 TOTAL
     Route: 048
     Dates: start: 20191101, end: 20191231
  6. HYDROXYCHLOROQUINE SULFATE. [Concomitant]
     Active Substance: HYDROXYCHLOROQUINE SULFATE
     Indication: COVID-19
  7. KEVZARA [Suspect]
     Active Substance: SARILUMAB
     Indication: PRODUCT USE IN UNAPPROVED INDICATION
  8. GLUCOSE TOLERANCE [Concomitant]
     Dosage: 2 TOTAL
  9. INFLUENZA VACCINE [Concomitant]
     Active Substance: INFLUENZA VIRUS VACCINE
     Dosage: 1 DF, 1 TOTAL
     Dates: start: 20200101, end: 20200131

REACTIONS (3)
  - Exposure during pregnancy [Unknown]
  - Premature baby [Unknown]
  - Off label use [Unknown]

NARRATIVE: CASE EVENT DATE: 2020
